FAERS Safety Report 8086604-6 (Version None)
Quarter: 2012Q1

REPORT INFORMATION
  Report Type: 
  Country: None (occurrence: None)
  Receive Date: 20120128
  Receipt Date: 20110517
  Transmission Date: 20120608
  Serious: No
  Sender: FDA-Public Use
  Company Number: US-ABBOTT-11P-163-0726204-00

PATIENT
  Sex: Female

DRUGS (9)
  1. HYDROCHLOROTHIAZIDE [Concomitant]
     Indication: HYPERTENSION
  2. PLAQUENIL [Concomitant]
     Indication: PRODUCT USED FOR UNKNOWN INDICATION
  3. ATENOLOL [Concomitant]
     Indication: HYPERTENSION
  4. CYMBALTA [Concomitant]
     Indication: DEPRESSION
  5. METHOTREXATE [Concomitant]
     Indication: INFLAMMATION
     Dosage: 8 PILLS EVERY WEEK
  6. LYRICA [Concomitant]
     Indication: FIBROMYALGIA
     Dosage: 1 DAILY
  7. ASPIRIN [Concomitant]
     Indication: ANTICOAGULANT THERAPY
  8. VITAMIN D [Concomitant]
     Indication: VITAMIN SUPPLEMENTATION
     Dosage: 50,00 UNITS, DAILY
  9. HUMIRA [Suspect]
     Indication: RHEUMATOID ARTHRITIS
     Route: 058
     Dates: start: 20110326

REACTIONS (1)
  - INJECTION SITE PAIN [None]
